FAERS Safety Report 7321744-8 (Version None)
Quarter: 2011Q1

REPORT INFORMATION
  Report Type: 
  Country: None (occurrence: None)
  Receive Date: 20110228
  Receipt Date: 20110214
  Transmission Date: 20110831
  Serious: Yes (Death, Hospitalization, Other)
  Sender: FDA-Public Use
  Company Number: US-CELGENEUS-163-20785-10113268

PATIENT
  Sex: Male

DRUGS (2)
  1. THALOMID [Suspect]
     Indication: NON-HODGKIN'S LYMPHOMA
     Dosage: 50 MILLIGRAM
     Route: 048
     Dates: start: 20100801, end: 20101201
  2. PREDNISONE [Concomitant]
     Dosage: 40 MILLIGRAM
     Dates: start: 20100801, end: 20101201

REACTIONS (4)
  - PNEUMONIA [None]
  - SEPSIS [None]
  - NON-HODGKIN'S LYMPHOMA [None]
  - BONE MARROW FAILURE [None]
